FAERS Safety Report 8446165-6 (Version None)
Quarter: 2012Q2

REPORT INFORMATION
  Report Type: 
  Country: None (occurrence: None)
  Receive Date: 20120618
  Receipt Date: 20120521
  Transmission Date: 20120825
  Serious: No
  Sender: FDA-Public Use
  Company Number: US-ASTRAZENECA-2010SE12961

PATIENT
  Age: 87 Year
  Sex: Female
  Weight: 81.6 kg

DRUGS (5)
  1. SINGULAIR [Concomitant]
  2. CALCIFEROL [Concomitant]
  3. PRILOSEC [Suspect]
     Route: 048
     Dates: start: 20050101
  4. CHLOR-TRIMETON [Concomitant]
     Indication: FOOD ALLERGY
  5. PRILOSEC [Suspect]
     Indication: GASTROOESOPHAGEAL REFLUX DISEASE
     Route: 048

REACTIONS (5)
  - HEARING IMPAIRED [None]
  - FATIGUE [None]
  - BURSITIS [None]
  - MALAISE [None]
  - SOMNOLENCE [None]
